FAERS Safety Report 7416099-4 (Version None)
Quarter: 2011Q2

REPORT INFORMATION
  Report Type: 
  Country: None (occurrence: None)
  Receive Date: 20110414
  Receipt Date: 20110401
  Transmission Date: 20111010
  Serious: Yes (Hospitalization)
  Sender: FDA-Public Use
  Company Number: DE-ELI_LILLY_AND_COMPANY-DE201104000642

PATIENT
  Age: 25 Year
  Sex: Female

DRUGS (2)
  1. TAVOR [Concomitant]
     Indication: SCHIZOPHRENIA, PARANOID TYPE
     Dosage: 1.5 MG, QD
     Route: 048
     Dates: start: 20100121, end: 20100212
  2. ZYPREXA [Suspect]
     Indication: SCHIZOPHRENIA, PARANOID TYPE
     Dosage: 20 MG, QD
     Route: 048
     Dates: start: 20100120, end: 20100212

REACTIONS (4)
  - ANAEMIA [None]
  - SERUM FERRITIN DECREASED [None]
  - BLOOD IRON DECREASED [None]
  - NEUTROPENIA [None]
